FAERS Safety Report 10187093 (Version 2)
Quarter: 2014Q2

REPORT INFORMATION
  Report Type: Spontaneous
  Country: US (occurrence: US)
  Receive Date: 20140522
  Receipt Date: 20140522
  Transmission Date: 20141212
  Serious: Yes (Other)
  Sender: FDA-Public Use
  Company Number: US-RANBAXY-2014US-79252

PATIENT
  Age: 55 Year
  Sex: Male

DRUGS (1)
  1. GABAPENTIN [Suspect]
     Indication: NEURALGIA
     Dosage: 600 MG, DAILY
     Route: 065

REACTIONS (4)
  - Myoclonus [Recovered/Resolved]
  - Infection [Unknown]
  - Toxicity to various agents [Recovered/Resolved]
  - Mental status changes [Unknown]
